FAERS Safety Report 19888046 (Version 1)
Quarter: 2021Q3

REPORT INFORMATION
  Report Type: Report from Study
  Country: US (occurrence: US)
  Receive Date: 20210927
  Receipt Date: 20210927
  Transmission Date: 20211014
  Serious: Yes (Other)
  Sender: FDA-Public Use
  Company Number: NVSC2021US213372

PATIENT
  Sex: Male

DRUGS (2)
  1. ILARIS [Suspect]
     Active Substance: CANAKINUMAB
     Indication: HAEMOPHAGOCYTIC LYMPHOHISTIOCYTOSIS
  2. ILARIS [Suspect]
     Active Substance: CANAKINUMAB
     Indication: STILL^S DISEASE
     Route: 065
     Dates: start: 20160801

REACTIONS (14)
  - Migraine [Unknown]
  - Panic attack [Unknown]
  - Anger [Unknown]
  - Injury [Unknown]
  - Fatigue [Unknown]
  - Suicidal ideation [Unknown]
  - Seizure [Unknown]
  - Fall [Unknown]
  - Dizziness [Unknown]
  - Ill-defined disorder [Unknown]
  - Visual impairment [Unknown]
  - Asthenia [Unknown]
  - Syncope [Unknown]
  - Crying [Unknown]
